FAERS Safety Report 4734932-1 (Version None)
Quarter: 2005Q3

REPORT INFORMATION
  Report Type: 
  Country: None (occurrence: None)
  Receive Date: 20050729
  Receipt Date: 20050718
  Transmission Date: 20060218
  Serious: Yes (Other)
  Sender: FDA-Public Use
  Company Number: HQWYE130402JUN05

PATIENT
  Age: 68 Year
  Sex: Female
  Weight: 72.64 kg

DRUGS (1)
  1. EFFEXOR XR [Suspect]
     Indication: DEPRESSION
     Dosage: 150 MG 1X PER 1 DAY,  ORAL
     Route: 048

REACTIONS (11)
  - AORTIC ANEURYSM [None]
  - ARTHRALGIA [None]
  - DYSPNOEA [None]
  - EMBOLISM [None]
  - FEELING ABNORMAL [None]
  - OEDEMA [None]
  - PERIPHERAL VASCULAR DISORDER [None]
  - RASH [None]
  - RENAL DISORDER [None]
  - SKIN DISCOLOURATION [None]
  - SYSTEMIC LUPUS ERYTHEMATOSUS [None]
